FAERS Safety Report 4543434-7 (Version None)
Quarter: 2005Q1

REPORT INFORMATION
  Report Type: 
  Country: None (occurrence: None)
  Receive Date: 20050103
  Receipt Date: 20041124
  Transmission Date: 20050727
  Serious: Yes (Disabling)
  Sender: FDA-Public Use
  Company Number: US-MERCK-0411USA03995

PATIENT
  Age: 55 Year
  Sex: Female

DRUGS (6)
  1. VIOXX [Suspect]
     Indication: NEURALGIA
     Route: 048
     Dates: start: 20030101, end: 20041021
  2. NEUROTON [Concomitant]
     Route: 065
  3. ASPIRIN [Concomitant]
     Route: 065
  4. TRAZODONE HYDROCHLORIDE [Concomitant]
     Route: 065
  5. PRIMERAL [Concomitant]
     Route: 065
  6. VITAMIN E [Concomitant]
     Route: 065

REACTIONS (22)
  - ABDOMINAL DISCOMFORT [None]
  - ABDOMINAL PAIN UPPER [None]
  - ADVERSE EVENT [None]
  - ANGINA PECTORIS [None]
  - ARTHRALGIA [None]
  - BACK PAIN [None]
  - BLOOD CHOLESTEROL INCREASED [None]
  - CARDIAC DISORDER [None]
  - CATARACT [None]
  - DRUG INEFFECTIVE [None]
  - DYSPHAGIA [None]
  - DYSPNOEA [None]
  - FATIGUE [None]
  - HEART RATE INCREASED [None]
  - HYPERTENSION [None]
  - JOINT SWELLING [None]
  - NECK PAIN [None]
  - OEDEMA PERIPHERAL [None]
  - OROPHARYNGEAL SWELLING [None]
  - PIGMENTATION DISORDER [None]
  - RASH [None]
  - WEIGHT INCREASED [None]
